FAERS Safety Report 7290191-X (Version None)
Quarter: 2011Q1

REPORT INFORMATION
  Report Type: 
  Country: None (occurrence: None)
  Receive Date: 20110214
  Receipt Date: 20110204
  Transmission Date: 20110831
  Serious: Yes (Hospitalization, Other)
  Sender: FDA-Public Use
  Company Number: PHHY2010US61852

PATIENT
  Sex: Female

DRUGS (13)
  1. PLAVIX [Concomitant]
     Dosage: 5 MG, QD
  2. ZANTAC [Concomitant]
     Indication: GASTROOESOPHAGEAL REFLUX DISEASE
     Dosage: 150 MG, QD
  3. VITAMIN B-12 [Concomitant]
     Dosage: 500 MG, QD
  4. CRESTOR [Concomitant]
     Indication: HYPERLIPIDAEMIA
     Dosage: 40 MG, QD
  5. HYDROCHLOROTHIAZIDE [Concomitant]
     Indication: HYPERTENSION
     Dosage: 12.5 MG, QD
  6. PROZAC [Concomitant]
     Indication: GASTROOESOPHAGEAL REFLUX DISEASE
     Dosage: 20 MG, QD
  7. LEVOXYL [Concomitant]
     Indication: HYPOTHYROIDISM
     Dosage: 5 MG, QD
  8. CALCIFEDIOL [Concomitant]
     Indication: OSTEOPOROSIS
     Dosage: 5000
  9. RECLAST [Suspect]
     Indication: OSTEOPOROSIS
     Dosage: 5 MG, UNK
     Dates: start: 20100824
  10. METOPROLOL [Concomitant]
     Indication: HYPERTENSION
     Dosage: 50 MG, BID
     Route: 048
  11. LOTREL [Concomitant]
     Indication: HYPERTENSION
     Dosage: 5/10 Q DAY
  12. METFORMIN HYDROCHLORIDE [Concomitant]
     Indication: DIABETES MELLITUS
     Dosage: 500 MG, BID
  13. ASCORBIC ACID [Concomitant]
     Dosage: 500 MG, BID

REACTIONS (9)
  - DECREASED APPETITE [None]
  - FLUID OVERLOAD [None]
  - MALAISE [None]
  - BLOOD GLUCOSE INCREASED [None]
  - PYREXIA [None]
  - RENAL FAILURE ACUTE [None]
  - RENAL FAILURE [None]
  - WHITE BLOOD CELL COUNT INCREASED [None]
  - NAUSEA [None]
